FAERS Safety Report 8521306-0 (Version None)
Quarter: 2012Q3

REPORT INFORMATION
  Report Type: 
  Country: None (occurrence: None)
  Receive Date: 20120712
  Receipt Date: 20120712
  Transmission Date: 20120928
  Serious: Yes (Hospitalization)
  Sender: FDA-Public Use
  Company Number: None

PATIENT
  Sex: Female
  Weight: 69.9 kg

DRUGS (3)
  1. ELOXATIN [Suspect]
     Dosage: 150 MG
  2. XELODA [Suspect]
     Dosage: 11500 MG
  3. TAXOTERE [Suspect]
     Dosage: 105 MG

REACTIONS (9)
  - VENTRICULAR FIBRILLATION [None]
  - VENTRICULAR HYPOKINESIA [None]
  - EXSANGUINATION [None]
  - ACUTE MYOCARDIAL INFARCTION [None]
  - HYPOTENSION [None]
  - INTRACARDIAC THROMBUS [None]
  - RETROPERITONEAL HAEMORRHAGE [None]
  - UPPER GASTROINTESTINAL HAEMORRHAGE [None]
  - PERITONEAL HAEMORRHAGE [None]
